FAERS Safety Report 5471997-6 (Version None)
Quarter: 2007Q3

REPORT INFORMATION
  Report Type: 
  Country: None (occurrence: None)
  Receive Date: 20070928
  Receipt Date: 20070914
  Transmission Date: 20080115
  Serious: No
  Sender: FDA-Public Use
  Company Number: US-BOEHRINGER INGELHEIM PHARMACEUTICALS, INC.-2007-BP-21047BP

PATIENT
  Age: 76 Year
  Sex: Male

DRUGS (1)
  1. FLOMAX [Suspect]
     Indication: PROSTATIC DISORDER
     Route: 048
     Dates: start: 20030101

REACTIONS (9)
  - BLADDER PAIN [None]
  - DIZZINESS [None]
  - DRUG EFFECT DECREASED [None]
  - EYE MOVEMENT DISORDER [None]
  - HYPOGEUSIA [None]
  - NASAL CONGESTION [None]
  - POSTNASAL DRIP [None]
  - THERAPEUTIC RESPONSE DECREASED [None]
  - VISION BLURRED [None]
